FAERS Safety Report 6610860-1 (Version None)
Quarter: 2010Q1

REPORT INFORMATION
  Report Type: 
  Country: None (occurrence: None)
  Receive Date: 20100219
  Receipt Date: 20100204
  Transmission Date: 20100710
  Serious: Yes (Other)
  Sender: FDA-Public Use
  Company Number: 2010000710

PATIENT
  Sex: Female

DRUGS (1)
  1. EFFENTORA (TABLET) [Suspect]
     Indication: CANCER PAIN
     Dosage: BU

REACTIONS (2)
  - DYSPNOEA [None]
  - LOCALISED OEDEMA [None]
